FAERS Safety Report 16129619 (Version 2)
Quarter: 2019Q1

REPORT INFORMATION
  Report Type: Spontaneous
  Country: US (occurrence: US)
  Receive Date: 20190328
  Receipt Date: 20190329
  Transmission Date: 20190418
  Serious: No
  Sender: FDA-Public Use
  Company Number: US-009507513-1903USA011419

PATIENT
  Sex: Female
  Weight: 64.86 kg

DRUGS (1)
  1. HYZAAR [Suspect]
     Active Substance: HYDROCHLOROTHIAZIDE\LOSARTAN POTASSIUM
     Indication: DIABETES MELLITUS
     Dosage: 12.5 MILLIGRAM, ONCE DAILY
     Route: 048

REACTIONS (1)
  - Product use in unapproved indication [Unknown]
